FAERS Safety Report 4518992-9 (Version None)
Quarter: 2004Q4

REPORT INFORMATION
  Report Type: 
  Country: None (occurrence: None)
  Receive Date: 20041201
  Receipt Date: 20041118
  Transmission Date: 20050328
  Serious: Yes (Hospitalization)
  Sender: FDA-Public Use
  Company Number: 2004079973

PATIENT
  Age: 70 Year
  Sex: Female
  Weight: 39.2 kg

DRUGS (7)
  1. NORVASC [Suspect]
     Indication: HYPERTENSION
     Dosage: 5 MG (5 MG, 1 IN 1 D), ORAL
     Route: 048
     Dates: end: 20041012
  2. CANDESARTAN CILEXETIL (CANDESARTAN CILEXETIL) [Suspect]
     Indication: HYPERTENSION
     Dosage: 4 MG (4 MG, 1 IN 1 D), ORAL
     Route: 048
     Dates: start: 20011108, end: 20041012
  3. URSODEOXYCHOLIC ACID (URSODEOXYCHOLIC ACID) [Concomitant]
  4. DIASTASE, TAKA (DIASTASE, TAKA) [Concomitant]
  5. NEUROVITAN [Concomitant]
  6. ETIZOLAM (ETIZOLAM) [Concomitant]
  7. ALL OTHER THERAPEUTIC PRODUCTS [Concomitant]

REACTIONS (7)
  - ANTINUCLEAR ANTIBODY POSITIVE [None]
  - DERMATOMYOSITIS [None]
  - HYPOKALAEMIA [None]
  - POLYMYOSITIS [None]
  - QUADRIPLEGIA [None]
  - RESPIRATORY DISORDER [None]
  - RHABDOMYOLYSIS [None]
